FAERS Safety Report 17006046 (Version 1)
Quarter: 2019Q4

REPORT INFORMATION
  Report Type: Spontaneous
  Country: US (occurrence: US)
  Receive Date: 20191107
  Receipt Date: 20191107
  Transmission Date: 20200122
  Serious: Yes (Death)
  Sender: FDA-Public Use
  Company Number: US-BAYER-2019-200804

PATIENT
  Sex: Female

DRUGS (1)
  1. VITRAKVI [Suspect]
     Active Substance: LAROTRECTINIB
     Dosage: UNK
     Dates: start: 2019, end: 2019

REACTIONS (2)
  - Death [Fatal]
  - Drug intolerance [None]

NARRATIVE: CASE EVENT DATE: 201910
